FAERS Safety Report 6008905-5 (Version None)
Quarter: 2008Q4

REPORT INFORMATION
  Report Type: 
  Country: None (occurrence: None)
  Receive Date: 20081216
  Receipt Date: 20081201
  Transmission Date: 20090506
  Serious: Yes (Other)
  Sender: FDA-Public Use
  Company Number: 2008S1021385

PATIENT
  Age: 40 Year
  Sex: Male
  Weight: 86.1834 kg

DRUGS (7)
  1. DURAGESIC /00070401/ (100 UG/HR) [Suspect]
     Indication: BACK PAIN
     Dosage: 200 UG, EVERY HOUR; TRANSDERMAL
     Route: 062
     Dates: start: 20030101, end: 20050101
  2. FENTANYL TRANSDERMAL SYSTEM [Suspect]
     Indication: BACK PAIN
     Dosage: 200 UG; EVERY HOUR; TRANSDERMAL, 100 UG; EVERY HOUR; TRANSDERMAL
     Route: 062
     Dates: start: 20050101
  3. ROZEREM [Concomitant]
  4. LACTULOSE [Concomitant]
  5. MIRALAX [Concomitant]
  6. LYRICA [Concomitant]
  7. SENNA [Concomitant]

REACTIONS (9)
  - ABDOMINAL PAIN [None]
  - BLOOD CHOLESTEROL INCREASED [None]
  - DRUG WITHDRAWAL SYNDROME [None]
  - GASTROOESOPHAGEAL REFLUX DISEASE [None]
  - HEAT RASH [None]
  - HYPERHIDROSIS [None]
  - HYPOTENSION [None]
  - PRODUCT QUALITY ISSUE [None]
  - REFUSAL OF TREATMENT BY PATIENT [None]
